FAERS Safety Report 13338781 (Version 1)
Quarter: 2017Q1

REPORT INFORMATION
  Report Type: Spontaneous
  Country: BR (occurrence: BR)
  Receive Date: 20170315
  Receipt Date: 20170315
  Transmission Date: 20170428
  Serious: Yes (Other)
  Sender: FDA-Public Use
  Company Number: BR-009507513-1703BRA005383

PATIENT
  Age: 42 Year
  Sex: Female
  Weight: 72 kg

DRUGS (6)
  1. DIAMICRON MR [Concomitant]
     Active Substance: GLICLAZIDE
     Indication: DIABETES MELLITUS
     Dosage: 1 TABLET PER DAY
     Route: 048
     Dates: start: 2012
  2. ARADOIS H [Concomitant]
     Active Substance: HYDROCHLOROTHIAZIDE\LOSARTAN POTASSIUM
     Indication: HYPERTENSION
     Dosage: 1 TABLET PER DAY
     Route: 048
     Dates: start: 2004
  3. JANUMET XR [Suspect]
     Active Substance: METFORMIN HYDROCHLORIDE\SITAGLIPTIN PHOSPHATE
     Indication: DIABETES MELLITUS
     Dosage: 1 TABLET PER DAY IN THE MORNING
     Route: 048
  4. AAS [Concomitant]
     Active Substance: ASPIRIN
     Indication: ANTICOAGULANT THERAPY
  5. JANUMET [Suspect]
     Active Substance: METFORMIN HYDROCHLORIDE\SITAGLIPTIN PHOSPHATE
     Indication: DIABETES MELLITUS
     Dosage: 2 TABLETS PER DAY IN THE MORNING
     Route: 048
     Dates: start: 2012, end: 201702
  6. AAS [Concomitant]
     Active Substance: ASPIRIN
     Indication: ISCHAEMIC HEART DISEASE PROPHYLAXIS
     Dosage: 1 TABLET AFTER LUNCH
     Route: 048
     Dates: start: 2004

REACTIONS (4)
  - Asthenia [Recovered/Resolved]
  - Diabetes mellitus inadequate control [Not Recovered/Not Resolved]
  - Pallor [Recovered/Resolved]
  - Cold sweat [Recovered/Resolved]

NARRATIVE: CASE EVENT DATE: 201612
